FAERS Safety Report 16308646 (Version 1)
Quarter: 2019Q2

REPORT INFORMATION
  Report Type: Spontaneous
  Country: US (occurrence: US)
  Receive Date: 20190514
  Receipt Date: 20190514
  Transmission Date: 20190711
  Serious: Yes (Life-Threatening, Hospitalization)
  Sender: FDA-Public Use
  Company Number: US-ELI_LILLY_AND_COMPANY-US201905004388

PATIENT
  Sex: Male

DRUGS (3)
  1. HUMALOG KWIKPEN [Suspect]
     Active Substance: INSULIN LISPRO
     Dosage: 30-40 INTERNATIONAL UNIT, BID
     Route: 058
     Dates: start: 2002
  2. HUMALOG KWIKPEN [Suspect]
     Active Substance: INSULIN LISPRO
     Indication: TYPE 2 DIABETES MELLITUS
     Dosage: 30-40 INTERNATIONAL UNIT, BID
     Route: 058
     Dates: start: 2002
  3. LANTUS [Suspect]
     Active Substance: INSULIN GLARGINE
     Indication: TYPE 2 DIABETES MELLITUS
     Dosage: UNK UNK, UNKNOWN
     Route: 065

REACTIONS (5)
  - Staphylococcal infection [Recovered/Resolved]
  - Pain [Recovered/Resolved]
  - Wrong product administered [Recovered/Resolved]
  - Blood glucose decreased [Recovered/Resolved]
  - Gangrene [Recovered/Resolved]
